FAERS Safety Report 8885546 (Version 2)
Quarter: 2012Q4

REPORT INFORMATION
  Report Type: 
  Country: US (occurrence: US)
  Receive Date: 20121101
  Receipt Date: 20121217
  Transmission Date: 20130627
  Serious: Yes (Other)
  Sender: FDA-Public Use
  Company Number: US-PFIZER INC-2012267234

PATIENT
  Sex: Male

DRUGS (1)
  1. LATANOPROST [Suspect]
     Indication: GLAUCOMA
     Dosage: UNK, 1x/day
     Route: 047

REACTIONS (3)
  - Intraocular pressure increased [Unknown]
  - Visual impairment [Unknown]
  - Eye movement disorder [Unknown]
